FAERS Safety Report 7774793-X (Version None)
Quarter: 2011Q3

REPORT INFORMATION
  Report Type: 
  Country: None (occurrence: None)
  Receive Date: 20110923
  Receipt Date: 20110912
  Transmission Date: 20111222
  Serious: Yes (Death, Hospitalization)
  Sender: FDA-Public Use
  Company Number: JP-PFIZER INC-2011219093

PATIENT
  Age: 55 Year
  Sex: Female
  Weight: 43.3 kg

DRUGS (29)
  1. PREDNISOLONE [Suspect]
     Dosage: 40 MG/M2, X 1 / 4WEEK
     Route: 048
     Dates: start: 20110728, end: 20110730
  2. SODIUM BICARBONATE [Concomitant]
     Dosage: UNK
     Dates: start: 20110713
  3. SOLU-MEDROL [Concomitant]
     Dosage: 20 MG, 1X/DAY
     Route: 041
     Dates: start: 20110819
  4. PASIL [Concomitant]
     Dosage: 5 MG, 1X/DAY
     Route: 048
  5. SULFAMETHOXAZOLE [Concomitant]
     Dosage: UNK
  6. DOXORUBICIN HYDROCHLORIDE [Suspect]
     Indication: ADULT T-CELL LYMPHOMA/LEUKAEMIA
     Dosage: 40 MG/M2, 1 / 4WEEK
     Route: 041
     Dates: start: 20110713, end: 20110818
  7. PREDNISOLONE SODIUM SUCCINATE INJ [Suspect]
     Indication: ADULT T-CELL LYMPHOMA/LEUKAEMIA
     Dosage: 10 MG, X 1 / 8WEEK
     Route: 065
     Dates: start: 20110816
  8. AMIZET [Concomitant]
     Dosage: 500 MG, 1X/DAY
     Route: 041
     Dates: start: 20110907
  9. VINCRISTINE SULFATE [Suspect]
     Indication: ADULT T-CELL LYMPHOMA/LEUKAEMIA
     Dosage: 1 MG/M2, X 1 / 4WEEK
     Route: 041
     Dates: start: 20110713, end: 20110818
  10. PREDNISOLONE [Suspect]
     Indication: ADULT T-CELL LYMPHOMA/LEUKAEMIA
     Dosage: 40 MG/M2, X 1 / 4WEEK
     Route: 048
     Dates: start: 20110713, end: 20110818
  11. CYTARABINE [Suspect]
     Indication: ADULT T-CELL LYMPHOMA/LEUKAEMIA
     Dosage: 40 MG, X 1 / 8WEEK
     Dates: start: 20110816
  12. POTASSIUM PHOSPHATE DIBASIC [Concomitant]
     Dosage: 1 DF, 1X/DAY
     Route: 048
  13. CARBOPLATIN [Suspect]
     Indication: ADULT T-CELL LYMPHOMA/LEUKAEMIA
     Dosage: 250 MG/M2, X 1 / 4WEEK
     Route: 041
     Dates: start: 20110728, end: 20110728
  14. VINDESINE SULFATE [Suspect]
     Indication: ADULT T-CELL LYMPHOMA/LEUKAEMIA
     Dosage: 2.4 MG/M2, X 1 / 4WEEK
     Route: 041
     Dates: start: 20110728, end: 20110728
  15. NEOPAREN NO.2 [Concomitant]
     Dosage: 20 ML, 1X/DAY
     Route: 041
     Dates: start: 20110830
  16. NEO-MERCAZOLE TAB [Concomitant]
     Dosage: UNK
  17. KW-0761 [Suspect]
     Indication: ADULT T-CELL LYMPHOMA/LEUKAEMIA
     Dosage: 1.0 MG/KG, X 1 / 2WEEK
     Route: 041
     Dates: start: 20110714, end: 20110817
  18. ETOPOSIDE [Suspect]
     Indication: ADULT T-CELL LYMPHOMA/LEUKAEMIA
     Dosage: 100 MG/M2, X 1 / 4WEEK
     Route: 041
     Dates: start: 20110728, end: 20110730
  19. FAMOTIDINE [Concomitant]
     Dosage: 1500 ML, 1X/DAY
     Route: 041
     Dates: start: 20110821
  20. DOXORUBICIN HYDROCHLORIDE [Suspect]
     Dosage: 30 MG/M2, MONTHLY
     Route: 041
     Dates: start: 20110720, end: 20110906
  21. METHOTREXATE SODIUM [Suspect]
     Indication: ADULT T-CELL LYMPHOMA/LEUKAEMIA
     Dosage: 15 MG, 1 / 8WEEK
     Dates: start: 20110816
  22. CYCLOPHOSPHAMIDE [Suspect]
     Indication: ADULT T-CELL LYMPHOMA/LEUKAEMIA
     Dosage: 350 MG/M2, X 1 /4WEEK
     Route: 041
     Dates: start: 20110713, end: 20110818
  23. PREPENON [Concomitant]
     Dosage: 40 MG, 1X/DAY
     Route: 041
     Dates: start: 20110819
  24. NEOPAREN NO.2 [Concomitant]
     Dosage: 200 ML, 1X/DAY
     Route: 041
     Dates: start: 20110826
  25. LEVOTHYROXINE SODIUM [Concomitant]
     Dosage: UNK
  26. PREDNISOLONE [Suspect]
     Dosage: 40 MG/M2, X 1 / 4WEEK
     Route: 048
     Dates: start: 20110720, end: 20110906
  27. RANIMUSTINE [Suspect]
     Indication: ADULT T-CELL LYMPHOMA/LEUKAEMIA
     Dosage: 60 MG/M2, X 1 / 4WEEK
     Route: 041
     Dates: start: 20110720, end: 20110906
  28. SODIUM BICARBONATE [Concomitant]
     Dosage: UNK
     Route: 041
     Dates: start: 20110819
  29. POTASSIUM PHOSPHATE DIBASIC [Concomitant]
     Dosage: 25 MG, 1X/DAY
     Route: 048

REACTIONS (1)
  - SEPTIC SHOCK [None]
